FAERS Safety Report 6137408-2 (Version None)
Quarter: 2009Q1

REPORT INFORMATION
  Report Type: 
  Country: None (occurrence: None)
  Receive Date: 20090326
  Receipt Date: 20090312
  Transmission Date: 20090719
  Serious: Yes (Hospitalization)
  Sender: FDA-Public Use
  Company Number: TPA2009A00398

PATIENT
  Age: 61 Year
  Sex: Male

DRUGS (2)
  1. ROZEREM [Suspect]
     Indication: DRUG USE FOR UNKNOWN INDICATION
     Dosage: 8 MG, PER ORAL
     Route: 048
  2. FLEXERIL [Suspect]

REACTIONS (3)
  - DRUG INTERACTION [None]
  - HALLUCINATION [None]
  - PANIC REACTION [None]
